FAERS Safety Report 6539438-5 (Version None)
Quarter: 2010Q1

REPORT INFORMATION
  Report Type: 
  Country: None (occurrence: None)
  Receive Date: 20100115
  Receipt Date: 20100106
  Transmission Date: 20100710
  Serious: Yes (Other)
  Sender: FDA-Public Use
  Company Number: JP-AMGEN-US385805

PATIENT
  Age: 49 Year
  Sex: Female

DRUGS (2)
  1. ENBREL [Suspect]
     Indication: RHEUMATOID ARTHRITIS
     Dosage: UNKNOWN
     Route: 058
  2. ENBREL [Suspect]
     Dosage: UNKNOWN
     Route: 058

REACTIONS (6)
  - DEVICE RELATED INFECTION [None]
  - PRURITUS [None]
  - RHEUMATOID ARTHRITIS [None]
  - SCRATCH [None]
  - SEPSIS [None]
  - STAPHYLOCOCCAL INFECTION [None]
